FAERS Safety Report 7576822-5 (Version None)
Quarter: 2011Q2

REPORT INFORMATION
  Report Type: 
  Country: None (occurrence: None)
  Receive Date: 20110624
  Receipt Date: 20110624
  Transmission Date: 20111010
  Serious: Yes (Hospitalization)
  Sender: FDA-Public Use
  Company Number: None

PATIENT
  Age: 77 Year
  Sex: Male
  Weight: 106 kg

DRUGS (1)
  1. UNASYN [Suspect]
     Indication: PNEUMONIA
     Dosage: 3GM EVERY 8 HOURS IV
     Route: 042
     Dates: start: 20110105, end: 20110107

REACTIONS (3)
  - EOSINOPHILIA [None]
  - PRURITUS [None]
  - RASH GENERALISED [None]
